FAERS Safety Report 6119154-4 (Version None)
Quarter: 2009Q1

REPORT INFORMATION
  Report Type: 
  Country: None (occurrence: None)
  Receive Date: 20090316
  Receipt Date: 20090306
  Transmission Date: 20090719
  Serious: Yes (Hospitalization)
  Sender: FDA-Public Use
  Company Number: US-BAYER-200910675BCC

PATIENT
  Age: 72 Year
  Sex: Female
  Weight: 73 kg

DRUGS (6)
  1. PHILLIPS' LAXATIVE DIETARY SUPPLEMENT [Suspect]
     Indication: CONSTIPATION
     Dosage: TOTAL DAILY DOSE: 4 DF  UNIT DOSE: 1 DF
     Dates: start: 20090303
  2. PROVIGIL [Concomitant]
  3. NORTRIPTYLINE HCL [Concomitant]
  4. BACLOFEN [Concomitant]
  5. CALCIUM [Concomitant]
  6. MULTI-VITAMIN [Concomitant]

REACTIONS (3)
  - DYSURIA [None]
  - FREQUENT BOWEL MOVEMENTS [None]
  - INTESTINAL OBSTRUCTION [None]
